FAERS Safety Report 20560620 (Version 1)
Quarter: 2022Q1

REPORT INFORMATION
  Report Type: Spontaneous
  Country: US (occurrence: None)
  Receive Date: 20220307
  Receipt Date: 20220307
  Transmission Date: 20220423
  Serious: No
  Sender: FDA-Public Use
  Company Number: None

PATIENT
  Sex: Male
  Weight: 78.47 kg

DRUGS (8)
  1. ABIRATERONE ACETATE [Suspect]
     Active Substance: ABIRATERONE ACETATE
     Indication: Prostate cancer
     Dosage: FREQUENCY : DAILY;?
     Route: 048
  2. ZYTIGA [Concomitant]
  3. ERGOCALCIFEROL [Concomitant]
     Active Substance: ERGOCALCIFEROL
  4. PAROXETINE [Concomitant]
  5. CRESTOR [Concomitant]
  6. FLOMAX [Concomitant]
  7. VITAMIN C [Concomitant]
  8. LUPRON [Concomitant]

REACTIONS (1)
  - Dizziness [None]
